FAERS Safety Report 6538791-6 (Version None)
Quarter: 2010Q1

REPORT INFORMATION
  Report Type: 
  Country: None (occurrence: None)
  Receive Date: 20100114
  Receipt Date: 20100114
  Transmission Date: 20100710
  Serious: Yes (Disabling)
  Sender: FDA-Public Use
  Company Number: None

PATIENT
  Age: 55 Year
  Sex: Male
  Weight: 79.2 kg

DRUGS (1)
  1. EFFIENT [Suspect]
     Indication: POST PROCEDURAL COMPLICATION
     Dosage: 10MG DAILY PO
     Route: 048
     Dates: start: 20100107, end: 20100107

REACTIONS (1)
  - ANAPHYLACTIC REACTION [None]
